FAERS Safety Report 5114274-5 (Version None)
Quarter: 2006Q3

REPORT INFORMATION
  Report Type: 
  Country: None (occurrence: None)
  Receive Date: 20060925
  Receipt Date: 20060728
  Transmission Date: 20061208
  Serious: Yes (Hospitalization)
  Sender: FDA-Public Use
  Company Number: FR-BRISTOL-MYERS SQUIBB COMPANY-13466198

PATIENT
  Age: 50 Year
  Sex: Female
  Weight: 69 kg

DRUGS (5)
  1. ABILIFY [Suspect]
     Indication: DELUSION
     Route: 048
     Dates: start: 20060713, end: 20060723
  2. ABILIFY [Suspect]
     Indication: AGITATION
     Route: 048
     Dates: start: 20060713, end: 20060723
  3. NORSET [Concomitant]
     Indication: DEPRESSION
     Route: 048
     Dates: start: 20060421
  4. VALIUM [Concomitant]
     Indication: ANXIETY
     Route: 048
     Dates: start: 20060420
  5. ROHYPNOL [Concomitant]
     Indication: INSOMNIA
     Route: 048
     Dates: start: 20060713, end: 20060816

REACTIONS (4)
  - DYSARTHRIA [None]
  - MUSCULOSKELETAL STIFFNESS [None]
  - PSYCHOMOTOR SKILLS IMPAIRED [None]
  - TREMOR [None]
